FAERS Safety Report 11225772 (Version 2)
Quarter: 2015Q3

REPORT INFORMATION
  Report Type: Report from Study
  Country: US (occurrence: US)
  Receive Date: 20150629
  Receipt Date: 20150708
  Transmission Date: 20151125
  Serious: Yes (Other)
  Sender: FDA-Public Use
  Company Number: US-AMGEN-USASL2015062782

PATIENT
  Age: 86 Year
  Sex: Female
  Weight: 53.75 kg

DRUGS (3)
  1. PROCRIT [Suspect]
     Active Substance: ERYTHROPOIETIN
     Indication: PRODUCT USED FOR UNKNOWN INDICATION
     Dosage: UNK
     Route: 065
  2. BENICAR [Concomitant]
     Active Substance: OLMESARTAN MEDOXOMIL
     Dosage: 40 MG, UNK
  3. NORMODYNE [Concomitant]
     Active Substance: LABETALOL HYDROCHLORIDE
     Dosage: 300 MG, TID

REACTIONS (13)
  - Peripheral vascular disorder [Unknown]
  - Generalised anxiety disorder [Unknown]
  - Tenderness [Unknown]
  - Local swelling [Unknown]
  - Hyperkalaemia [Unknown]
  - Acute kidney injury [Unknown]
  - Mobility decreased [Unknown]
  - Deformity [Unknown]
  - Nephropathy toxic [Unknown]
  - Heart rate abnormal [Unknown]
  - Essential hypertension [Unknown]
  - Iron deficiency anaemia [Unknown]
  - Back pain [Unknown]

NARRATIVE: CASE EVENT DATE: 20150513
